FAERS Safety Report 5362799-X (Version None)
Quarter: 2007Q2

REPORT INFORMATION
  Report Type: 
  Country: None (occurrence: None)
  Receive Date: 20070612
  Receipt Date: 20070531
  Transmission Date: 20071010
  Serious: Yes (Disabling)
  Sender: FDA-Public Use
  Company Number: FR-1161432

PATIENT
  Age: 24 Year
  Sex: Male

DRUGS (1)
  1. VEXOL [Suspect]
     Indication: PROPHYLAXIS AGAINST TRANSPLANT REJECTION
     Dosage: EYE DROPS, SUSPENSION; 1 GTT QD OS
     Route: 047
     Dates: start: 20020701

REACTIONS (5)
  - ASTIGMATISM [None]
  - BLINDNESS [None]
  - GRAFT COMPLICATION [None]
  - OCULAR HYPERTENSION [None]
  - SUTURE RUPTURE [None]
